FAERS Safety Report 21389406 (Version 1)
Quarter: 2022Q3

REPORT INFORMATION
  Report Type: Spontaneous
  Country: US (occurrence: US)
  Receive Date: 20220929
  Receipt Date: 20220929
  Transmission Date: 20221027
  Serious: No
  Sender: FDA-Public Use
  Company Number: US-RECORDATI RARE DISEASES INC.-2022002068

PATIENT
  Sex: Female

DRUGS (1)
  1. PANHEMATIN [Suspect]
     Active Substance: HEMIN
     Indication: Porphyria acute
     Dosage: 1 VIAL OF 350 MG, 3 VIALS 350 MG AT START
     Route: 065
     Dates: start: 20220321, end: 20220324

REACTIONS (5)
  - Frustration tolerance decreased [Unknown]
  - Heart rate increased [Not Recovered/Not Resolved]
  - Depressed level of consciousness [Unknown]
  - Therapy interrupted [Not Recovered/Not Resolved]
  - Therapy cessation [Unknown]
